FAERS Safety Report 4532401-5 (Version None)
Quarter: 2004Q4

REPORT INFORMATION
  Report Type: 
  Country: None (occurrence: None)
  Receive Date: 20041217
  Receipt Date: 20041015
  Transmission Date: 20050328
  Serious: Yes (Hospitalization)
  Sender: FDA-Public Use
  Company Number: US-JNJFOC-20041004964

PATIENT
  Age: 53 Year
  Sex: Female

DRUGS (7)
  1. TYLENOL ARTHRITIS PAIN ER (ACETAMINOPHEN) [Suspect]
     Indication: TENDONITIS
     Dosage: MAXIMUM 1300 MG DAILY, ^OFF AND ON^  ALL SUMMER
     Dates: start: 20040601
  2. EXCEDRIN (MIGRAINE) [Suspect]
  3. CLORAZEPAM (CLORAZEPATE DIPOTASSIUM) [Concomitant]
  4. ENALAPRIL (ENALPRIL) [Concomitant]
  5. HYDROCHLOROTHIAZIDE [Concomitant]
  6. ATENOLOL [Concomitant]
  7. REMERON [Concomitant]

REACTIONS (4)
  - BREAST MICROCALCIFICATION [None]
  - CLOSTRIDIUM COLITIS [None]
  - FAECES DISCOLOURED [None]
  - MENTAL DISORDER [None]
